FAERS Safety Report 4276233-4 (Version None)
Quarter: 2004Q1

REPORT INFORMATION
  Report Type: 
  Country: None (occurrence: None)
  Receive Date: 20040121
  Receipt Date: 20031111
  Transmission Date: 20041129
  Serious: No
  Sender: FDA-Public Use
  Company Number: US-GLAXOSMITHKLINE-A0439276A

PATIENT
  Sex: Male

DRUGS (2)
  1. ZIAGEN [Suspect]
     Indication: HIV INFECTION
     Dosage: 300MG TWICE PER DAY
     Route: 048
  2. UNSPECIFIED DRUG(S) [Concomitant]

REACTIONS (2)
  - FEELING ABNORMAL [None]
  - STOOL ANALYSIS ABNORMAL [None]
